FAERS Safety Report 24736580 (Version 3)
Quarter: 2025Q1

REPORT INFORMATION
  Report Type: Spontaneous
  Country: ES (occurrence: ES)
  Receive Date: 20241216
  Receipt Date: 20250101
  Transmission Date: 20250409
  Serious: Yes (Death, Hospitalization)
  Sender: ROCHE
  Company Number: ES-ROCHE-10000155785

PATIENT
  Age: 41 Year
  Sex: Male

DRUGS (9)
  1. BEVACIZUMAB [Suspect]
     Active Substance: BEVACIZUMAB
     Indication: Glioblastoma
     Dosage: EVERY?15 DAYS AND THEN EVERY 21 DAYS
     Route: 042
     Dates: start: 202306
  2. BEVACIZUMAB [Suspect]
     Active Substance: BEVACIZUMAB
     Indication: Radiation necrosis
     Dosage: EVERY?15 DAYS AND THEN EVERY 21 DAYS
     Route: 042
  3. REGORAFENIB [Concomitant]
     Active Substance: REGORAFENIB
     Dosage: 160 MG/DAY FOR 21 DAYS OF A 28-DAY CYCLE BUT REDUCED TO 120 MG/DAY
     Route: 065
     Dates: start: 202304
  4. REGORAFENIB [Concomitant]
     Active Substance: REGORAFENIB
     Route: 065
  5. REGORAFENIB [Concomitant]
     Active Substance: REGORAFENIB
     Route: 065
  6. REGORAFENIB [Concomitant]
     Active Substance: REGORAFENIB
     Route: 065
  7. TEMOZOLOMIDE [Concomitant]
     Active Substance: TEMOZOLOMIDE
     Dates: start: 202211
  8. TEMOZOLOMIDE [Concomitant]
     Active Substance: TEMOZOLOMIDE
     Dates: start: 202212
  9. DEXAMETHASONE [Concomitant]
     Active Substance: DEXAMETHASONE

REACTIONS (3)
  - Cerebral haemorrhage [Fatal]
  - Off label use [Fatal]
  - Off label use [Fatal]
